FAERS Safety Report 15037161 (Version 16)
Quarter: 2022Q4

REPORT INFORMATION
  Report Type: Report from Study
  Country: CN (occurrence: None)
  Receive Date: 20180620
  Receipt Date: 20221007
  Transmission Date: 20230112
  Serious: Yes (Hospitalization)
  Sender: FDA-Public Use
  Company Number: CN-ROCHE-2115397

PATIENT
  Age: 61 Year
  Sex: Male
  Weight: 64.5 kg

DRUGS (67)
  1. ATEZOLIZUMAB [Suspect]
     Active Substance: ATEZOLIZUMAB
     Indication: Transitional cell carcinoma metastatic
     Dosage: ON DAY 1 OF EACH 21-DAY CYCLE?MOST RECENT DOSE PRIOR TO SAES: 28/MAR/2018 AND 09/MAY/2018
     Route: 042
     Dates: start: 20180211
  2. GEMCITABINE [Suspect]
     Active Substance: GEMCITABINE
     Indication: Transitional cell carcinoma metastatic
     Dosage: ON DAY 1 AND DAY 8 OF EACH 21-DAY CYCLE?MOST RECENT DOSE (1600 MG/M2) PRIOR TO SAE ON 09/MAY/2018,
     Route: 042
     Dates: start: 20180211
  3. CARBOPLATIN [Suspect]
     Active Substance: CARBOPLATIN
     Indication: Transitional cell carcinoma metastatic
     Dosage: MOST RECENT DOSE (1600 MG) PRIOR TO SAES: 28/MAR/2018 AND 09/MAY/2018 (329 MG)?AREA UNDER THE CONCEN
     Route: 042
     Dates: start: 20180211
  4. MEGESTROL ACETATE [Concomitant]
     Active Substance: MEGESTROL ACETATE
     Route: 048
     Dates: start: 20180307, end: 20180629
  5. CEFDINIR [Concomitant]
     Active Substance: CEFDINIR
     Route: 048
     Dates: start: 20180307
  6. LEVOFLOXACIN [Concomitant]
     Active Substance: LEVOFLOXACIN
     Route: 048
     Dates: start: 20180307
  7. LEVOFLOXACIN [Concomitant]
     Active Substance: LEVOFLOXACIN
     Route: 048
     Dates: start: 20180509
  8. PIPERACILLIN SODIUM [Concomitant]
     Active Substance: PIPERACILLIN SODIUM
     Route: 050
     Dates: start: 20180306
  9. TAZOBACTAM SODIUM [Concomitant]
     Active Substance: TAZOBACTAM SODIUM
     Route: 050
     Dates: start: 20180306
  10. PANTOPRAZOLE SODIUM [Concomitant]
     Active Substance: PANTOPRAZOLE SODIUM
     Route: 050
     Dates: start: 20180619, end: 20180627
  11. PANTOPRAZOLE SODIUM [Concomitant]
     Active Substance: PANTOPRAZOLE SODIUM
     Route: 042
     Dates: start: 20180420, end: 20180420
  12. CEFOXITIN SODIUM [Concomitant]
     Active Substance: CEFOXITIN SODIUM
     Indication: Infection
     Route: 050
     Dates: start: 20180620, end: 20180627
  13. CEFOXITIN SODIUM [Concomitant]
     Active Substance: CEFOXITIN SODIUM
     Route: 042
     Dates: start: 20180524, end: 20180528
  14. CEFOXITIN SODIUM [Concomitant]
     Active Substance: CEFOXITIN SODIUM
     Route: 042
     Dates: start: 20180426, end: 20180428
  15. CARBAZOCHROME SODIUM SULFONATE [Concomitant]
     Active Substance: CARBAZOCHROME SODIUM SULFONATE
     Indication: Haemostasis
     Route: 050
     Dates: start: 20180620, end: 20180627
  16. CARBAZOCHROME SODIUM SULFONATE [Concomitant]
     Active Substance: CARBAZOCHROME SODIUM SULFONATE
     Route: 042
     Dates: start: 20180523, end: 20180528
  17. LIPOSYN (R) INTRAVENOUS FAT EMULSION [Concomitant]
     Active Substance: LIPOSYN (R) INTRAVENOUS FAT EMULSION
     Route: 050
     Dates: start: 20180622, end: 20180625
  18. THROMBOPOIETIN [Concomitant]
     Active Substance: THROMBOPOIETIN
     Indication: Platelet count increased
     Route: 048
     Dates: start: 20180623, end: 20180623
  19. THROMBOPOIETIN [Concomitant]
     Active Substance: THROMBOPOIETIN
     Route: 058
     Dates: start: 20180625, end: 20180627
  20. THROMBOPOIETIN [Concomitant]
     Active Substance: THROMBOPOIETIN
     Route: 058
     Dates: start: 20180621, end: 20180622
  21. THROMBOPOIETIN [Concomitant]
     Active Substance: THROMBOPOIETIN
     Route: 058
     Dates: start: 20180523, end: 20180528
  22. THROMBOPOIETIN [Concomitant]
     Active Substance: THROMBOPOIETIN
     Dosage: 1500 IU  (IH (INHALED) EVERYDAY)
     Route: 050
     Dates: start: 20180620, end: 20180620
  23. THROMBOPOIETIN [Concomitant]
     Active Substance: THROMBOPOIETIN
     Route: 050
     Dates: start: 20180714, end: 20180714
  24. THROMBOPOIETIN [Concomitant]
     Active Substance: THROMBOPOIETIN
     Route: 058
     Dates: start: 20180716, end: 20180722
  25. THROMBOPOIETIN [Concomitant]
     Active Substance: THROMBOPOIETIN
     Route: 050
     Dates: start: 20180721, end: 20180721
  26. THROMBOPOIETIN [Concomitant]
     Active Substance: THROMBOPOIETIN
     Route: 050
     Dates: start: 20180725, end: 20180725
  27. THROMBOPOIETIN [Concomitant]
     Active Substance: THROMBOPOIETIN
     Route: 042
     Dates: start: 20180524, end: 20180528
  28. THROMBOPOIETIN [Concomitant]
     Active Substance: THROMBOPOIETIN
     Route: 042
     Dates: start: 20180419, end: 20180420
  29. THROMBOPOIETIN [Concomitant]
     Active Substance: THROMBOPOIETIN
     Route: 042
     Dates: start: 20180425, end: 20180425
  30. THROMBOPOIETIN [Concomitant]
     Active Substance: THROMBOPOIETIN
     Route: 050
     Dates: start: 20180623, end: 20180627
  31. THROMBOPOIETIN [Concomitant]
     Active Substance: THROMBOPOIETIN
     Route: 042
     Dates: start: 20180427, end: 20180428
  32. THROMBOPOIETIN [Concomitant]
     Active Substance: THROMBOPOIETIN
     Dosage: ONE VIAL
     Route: 058
  33. TRAMADOL [Concomitant]
     Active Substance: TRAMADOL
     Indication: Pain
     Route: 030
     Dates: start: 20180619, end: 20180619
  34. TRAMADOL [Concomitant]
     Active Substance: TRAMADOL
     Route: 048
     Dates: start: 20180621, end: 20180621
  35. TRAMADOL [Concomitant]
     Active Substance: TRAMADOL
     Route: 048
     Dates: start: 20180624, end: 20180624
  36. HUMAN RED BLOOD CELL [Concomitant]
     Active Substance: HUMAN RED BLOOD CELL
     Indication: Red blood cell count increased
     Dates: start: 20180620, end: 20180620
  37. HUMAN RED BLOOD CELL [Concomitant]
     Active Substance: HUMAN RED BLOOD CELL
     Indication: White blood cell count increased
  38. OMEPRAZOLE [Concomitant]
     Active Substance: OMEPRAZOLE
     Route: 048
     Dates: start: 20180626, end: 20180626
  39. INTRALIPID [Concomitant]
     Active Substance: EGG PHOSPHOLIPIDS\GLYCERIN\SOYBEAN OIL
     Route: 042
     Dates: start: 20180523, end: 20180528
  40. INDOMETHACIN [Concomitant]
     Active Substance: INDOMETHACIN
     Route: 054
     Dates: start: 20180523, end: 20180523
  41. INDOMETHACIN [Concomitant]
     Active Substance: INDOMETHACIN
     Route: 054
     Dates: start: 20180424, end: 20180426
  42. PROMETHAZINE HYDROCHLORIDE [Concomitant]
     Active Substance: PROMETHAZINE HYDROCHLORIDE
     Route: 030
     Dates: start: 20180523, end: 20180523
  43. MAGNESIUM ISOGLYCYRRHIZINATE [Concomitant]
     Active Substance: MAGNESIUM ISOGLYCYRRHIZINATE
     Route: 042
     Dates: start: 20180419, end: 20180420
  44. CEFMETAZOLE SODIUM [Concomitant]
     Active Substance: CEFMETAZOLE SODIUM
     Indication: Inflammation
     Route: 042
     Dates: start: 20180425, end: 20180426
  45. ETIMICIN SULFATE [Concomitant]
     Active Substance: ETIMICIN SULFATE
     Indication: Inflammation
     Route: 042
     Dates: start: 20180426, end: 20180428
  46. SODIUM CHLORIDE [Concomitant]
     Active Substance: SODIUM CHLORIDE
     Indication: Inflammation
     Route: 042
     Dates: start: 20180426, end: 20180428
  47. CEFOXITIN SODIUM [Concomitant]
     Active Substance: CEFOXITIN SODIUM
     Indication: Infection
     Route: 042
     Dates: start: 20180426, end: 20180428
  48. FOLIC ACID [Concomitant]
     Active Substance: FOLIC ACID
     Indication: Anaemia
     Route: 048
     Dates: start: 20180425, end: 20180425
  49. HUMAN RED BLOOD CELL [Concomitant]
     Active Substance: HUMAN RED BLOOD CELL
     Route: 042
     Dates: start: 20180427, end: 20180427
  50. HUMAN RED BLOOD CELL [Concomitant]
     Active Substance: HUMAN RED BLOOD CELL
     Route: 042
     Dates: start: 20180425, end: 20180426
  51. ONDANSETRON HYDROCHLORIDE [Concomitant]
     Active Substance: ONDANSETRON HYDROCHLORIDE
     Indication: Prophylaxis of nausea and vomiting
     Route: 042
     Dates: start: 20180706, end: 20180706
  52. ONDANSETRON HYDROCHLORIDE [Concomitant]
     Active Substance: ONDANSETRON HYDROCHLORIDE
     Route: 042
     Dates: start: 20180712, end: 20180712
  53. ONDANSETRON HYDROCHLORIDE [Concomitant]
     Active Substance: ONDANSETRON HYDROCHLORIDE
     Route: 042
     Dates: start: 20180328, end: 20180328
  54. ONDANSETRON HYDROCHLORIDE [Concomitant]
     Active Substance: ONDANSETRON HYDROCHLORIDE
     Route: 042
     Dates: start: 20180403, end: 20180403
  55. ONDANSETRON HYDROCHLORIDE [Concomitant]
     Active Substance: ONDANSETRON HYDROCHLORIDE
     Route: 042
     Dates: start: 20180515, end: 20180515
  56. ONDANSETRON HYDROCHLORIDE [Concomitant]
     Active Substance: ONDANSETRON HYDROCHLORIDE
     Route: 042
     Dates: start: 20180509, end: 20180509
  57. ERYTHROPOIETIN [Concomitant]
     Active Substance: ERYTHROPOIETIN
     Route: 042
     Dates: start: 20180425, end: 20180425
  58. ERYTHROPOIETIN [Concomitant]
     Active Substance: ERYTHROPOIETIN
     Route: 042
     Dates: start: 20180425, end: 20180425
  59. ERYTHROPOIETIN [Concomitant]
     Active Substance: ERYTHROPOIETIN
     Route: 042
     Dates: start: 20180427, end: 20180428
  60. ERYTHROPOIETIN [Concomitant]
     Active Substance: ERYTHROPOIETIN
     Route: 042
     Dates: start: 20180524, end: 20180528
  61. ALBUMIN PREPARED FROM HUMAN PLASMA [Concomitant]
     Route: 042
     Dates: start: 20180425, end: 20180428
  62. HUMAN RED BLOOD CELL [Concomitant]
     Active Substance: HUMAN RED BLOOD CELL
     Dosage: SUSPENDED
     Route: 042
     Dates: start: 20180425, end: 20180426
  63. HUMAN RED BLOOD CELL [Concomitant]
     Active Substance: HUMAN RED BLOOD CELL
     Route: 042
     Dates: start: 20180427, end: 20180427
  64. GLYCERIN [Concomitant]
     Active Substance: GLYCERIN
     Indication: Constipation
     Dosage: ENEMA
     Dates: start: 20180524, end: 20180524
  65. ONDANSETRON HYDROCHLORIDE [Concomitant]
     Active Substance: ONDANSETRON HYDROCHLORIDE
     Indication: Vomiting
     Route: 042
     Dates: start: 20180509, end: 20180509
  66. ONDANSETRON HYDROCHLORIDE [Concomitant]
     Active Substance: ONDANSETRON HYDROCHLORIDE
     Route: 042
     Dates: start: 20180515, end: 20180515
  67. LACTULOSE [Concomitant]
     Active Substance: LACTULOSE
     Indication: Constipation
     Route: 048
     Dates: start: 20180524, end: 20180524

REACTIONS (4)
  - Myelosuppression [Recovered/Resolved]
  - Urinary tract infection [Not Recovered/Not Resolved]
  - Myelosuppression [Recovered/Resolved]
  - Pneumonia [Recovered/Resolved]

NARRATIVE: CASE EVENT DATE: 20180418
